FAERS Safety Report 8988256 (Version 1)
Quarter: 2012Q4

REPORT INFORMATION
  Report Type: 
  Country: US (occurrence: US)
  Receive Date: 20121227
  Receipt Date: 20121227
  Transmission Date: 20130627
  Serious: Yes (Hospitalization)
  Sender: FDA-Public Use
  Company Number: US-BAYER-2012-134549

PATIENT
  Age: 48 Year
  Sex: Female
  Weight: 76 kg

DRUGS (2)
  1. YASMIN [Suspect]
     Indication: ENDOMETRIOSIS
  2. BABY ASPIRIN [Concomitant]

REACTIONS (3)
  - Thrombophlebitis superficial [None]
  - Deep vein thrombosis [None]
  - Off label use [None]
